FAERS Safety Report 14764654 (Version 1)
Quarter: 2018Q2

REPORT INFORMATION
  Report Type: Spontaneous
  Country: GB (occurrence: GB)
  Receive Date: 20180416
  Receipt Date: 20180416
  Transmission Date: 20180711
  Serious: Yes (Hospitalization)
  Sender: FDA-Public Use
  Company Number: GB-GILEAD-2018-0332420

PATIENT
  Age: 58 Year
  Sex: Male
  Weight: 113 kg

DRUGS (12)
  1. LANSOPRAZOLE. [Concomitant]
     Active Substance: LANSOPRAZOLE
  2. DESCOVY [Suspect]
     Active Substance: EMTRICITABINE\TENOFOVIR ALAFENAMIDE FUMARATE
     Indication: HIV INFECTION
     Dosage: 1 DF, QD
     Route: 048
     Dates: start: 20180214, end: 20180228
  3. ACETYLSALICYLIC ACID [Concomitant]
     Active Substance: ASPIRIN
  4. RAMIPRIL. [Concomitant]
     Active Substance: RAMIPRIL
  5. ATORVASTATIN [Concomitant]
     Active Substance: ATORVASTATIN
  6. NICORANDIL [Concomitant]
     Active Substance: NICORANDIL
  7. LITHIUM. [Concomitant]
     Active Substance: LITHIUM
  8. EPLERENONE. [Concomitant]
     Active Substance: EPLERENONE
  9. QUETIAPINE. [Concomitant]
     Active Substance: QUETIAPINE
  10. RANOLAZINE. [Concomitant]
     Active Substance: RANOLAZINE
  11. CITALOPRAM [Concomitant]
     Active Substance: CITALOPRAM HYDROBROMIDE
  12. NEVIRAPINE. [Concomitant]
     Active Substance: NEVIRAPINE

REACTIONS (3)
  - Vomiting [Recovered/Resolved with Sequelae]
  - Abdominal pain [Recovered/Resolved with Sequelae]
  - Constipation [Recovered/Resolved with Sequelae]

NARRATIVE: CASE EVENT DATE: 20180214
